FAERS Safety Report 4937009-5 (Version None)
Quarter: 2006Q1

REPORT INFORMATION
  Report Type: 
  Country: None (occurrence: None)
  Receive Date: 20060309
  Receipt Date: 20060224
  Transmission Date: 20060701
  Serious: Yes (Hospitalization)
  Sender: FDA-Public Use
  Company Number: JP-SANOFI-SYNTHELABO-A03200601048

PATIENT
  Sex: Male

DRUGS (2)
  1. ELIGARD [Suspect]
     Indication: PROSTATE CANCER
     Route: 058
     Dates: start: 20021001, end: 20031201
  2. CHLORMADINONE ACETATE TAB [Suspect]
     Indication: PROSTATE CANCER
     Route: 065
     Dates: start: 20021001, end: 20031201

REACTIONS (4)
  - ANAEMIA [None]
  - APLASIA PURE RED CELL [None]
  - DYSPNOEA [None]
  - PALPITATIONS [None]
